FAERS Safety Report 5595652-7 (Version None)
Quarter: 2008Q1

REPORT INFORMATION
  Report Type: 
  Country: None (occurrence: None)
  Receive Date: 20080118
  Receipt Date: 20080109
  Transmission Date: 20080703
  Serious: Yes (Hospitalization)
  Sender: FDA-Public Use
  Company Number: US-AMGEN-QUU259804

PATIENT
  Sex: Male

DRUGS (1)
  1. ENBREL [Suspect]
     Indication: PSORIASIS
     Route: 058
     Dates: start: 20021126

REACTIONS (4)
  - IMMUNE SYSTEM DISORDER [None]
  - OEDEMA PERIPHERAL [None]
  - SKIN REACTION [None]
  - WHITE BLOOD CELL COUNT INCREASED [None]
